FAERS Safety Report 12904102 (Version 1)
Quarter: 2016Q4

REPORT INFORMATION
  Report Type: Spontaneous
  Country: JP (occurrence: JP)
  Receive Date: 20161101
  Receipt Date: 20161101
  Transmission Date: 20170207
  Serious: Yes (Other)
  Sender: FDA-Public Use
  Company Number: JP-JNJFOC-20161024939

PATIENT
  Age: 52 Year
  Sex: Female

DRUGS (3)
  1. DOXORUBICIN HYDROCHLORIDE. [Suspect]
     Active Substance: DOXORUBICIN HYDROCHLORIDE
     Indication: MALIGNANT ASCITES
     Route: 065
  2. WARFARIN [Concomitant]
     Active Substance: WARFARIN
     Indication: DEEP VEIN THROMBOSIS
     Route: 065
  3. DOXORUBICIN HYDROCHLORIDE. [Suspect]
     Active Substance: DOXORUBICIN HYDROCHLORIDE
     Indication: METASTASES TO LUNG
     Route: 065

REACTIONS (3)
  - Off label use [Unknown]
  - Interstitial lung disease [Recovering/Resolving]
  - Product use issue [Unknown]
